FAERS Safety Report 17664143 (Version 1)
Quarter: 2020Q2

REPORT INFORMATION
  Report Type: Spontaneous
  Country: JP (occurrence: JP)
  Receive Date: 20200414
  Receipt Date: 20200414
  Transmission Date: 20200713
  Serious: Yes (Life-Threatening, Hospitalization)
  Sender: FDA-Public Use
  Company Number: JP-TEVA-2020-JP-1222750

PATIENT
  Age: 43 Year
  Sex: Female

DRUGS (5)
  1. CAFFEINE. [Suspect]
     Active Substance: CAFFEINE
     Indication: OVERDOSE
     Dosage: 15360 MG (190 MG/KG)
     Route: 048
  2. LAMOTRIGINE. [Suspect]
     Active Substance: LAMOTRIGINE
     Indication: OVERDOSE
     Dosage: 5 MG/KG
     Route: 048
  3. IBUPROFEN. [Suspect]
     Active Substance: IBUPROFEN
     Indication: OVERDOSE
     Dosage: 356 MG/KG
     Route: 048
  4. AMITRIPTYLINE [Suspect]
     Active Substance: AMITRIPTYLINE
     Indication: OVERDOSE
     Dosage: 2500 MG
     Route: 048
  5. RISPERIDONE. [Suspect]
     Active Substance: RISPERIDONE
     Indication: OVERDOSE
     Dosage: 0.6 MG/KG
     Route: 048

REACTIONS (17)
  - Suicide attempt [Recovered/Resolved]
  - Ventricular fibrillation [Recovered/Resolved]
  - Cardiac arrest [Recovered/Resolved]
  - Metabolic acidosis [Recovered/Resolved]
  - Overdose [Recovered/Resolved]
  - Atrial fibrillation [Recovered/Resolved]
  - Acute kidney injury [Recovered/Resolved]
  - Rhabdomyolysis [Recovered/Resolved]
  - Toxicity to various agents [Recovered/Resolved]
  - Torsade de pointes [Recovered/Resolved]
  - Hypokalaemia [Recovered/Resolved]
  - Mental status changes [Recovered/Resolved]
  - Shock [Recovered/Resolved]
  - Hyperhidrosis [Recovered/Resolved]
  - Tremor [Recovered/Resolved]
  - Hyperlactacidaemia [Recovered/Resolved]
  - Loss of consciousness [Recovered/Resolved]
